FAERS Safety Report 8048938-0 (Version None)
Quarter: 2012Q1

REPORT INFORMATION
  Report Type: 
  Country: None (occurrence: None)
  Receive Date: 20120117
  Receipt Date: 20120111
  Transmission Date: 20120608
  Serious: Yes (Death)
  Sender: FDA-Public Use
  Company Number: US-PFIZER INC-2008003577

PATIENT
  Age: 46 Year
  Sex: Female

DRUGS (4)
  1. PROPOXYPHENE HCL AND ACETAMINOPHEN [Suspect]
     Route: 048
  2. AVINZA [Suspect]
     Route: 048
  3. PREGABALIN [Suspect]
     Route: 048
  4. CLONAZEPAM [Suspect]
     Route: 048

REACTIONS (3)
  - RESPIRATORY ARREST [None]
  - DEATH [None]
  - CARDIAC ARREST [None]
